FAERS Safety Report 5661267-5 (Version None)
Quarter: 2008Q1

REPORT INFORMATION
  Report Type: 
  Country: None (occurrence: None)
  Receive Date: 20080312
  Receipt Date: 20080228
  Transmission Date: 20080703
  Serious: Yes (Other)
  Sender: FDA-Public Use
  Company Number: B0511220A

PATIENT
  Age: 13 Year

DRUGS (7)
  1. MELPHALAN [Suspect]
     Dosage: 70MGM2 PER DAY
     Route: 065
  2. BUSULPHAN [Concomitant]
     Dosage: 16MGK PER DAY
     Route: 065
  3. THIOTEPA [Concomitant]
     Dosage: 300MGM2 PER DAY
     Route: 065
  4. CYCLOPHOSPHAMIDE [Concomitant]
     Dosage: 120MGK PER DAY
     Route: 065
  5. TACROLIMUS [Concomitant]
     Indication: PROPHYLAXIS AGAINST GRAFT VERSUS HOST DISEASE
     Route: 065
  6. STEM CELL TRANSPLANT [Concomitant]
     Route: 065
  7. METHOTREXATE [Concomitant]
     Indication: PROPHYLAXIS AGAINST GRAFT VERSUS HOST DISEASE

REACTIONS (1)
  - VENOOCCLUSIVE DISEASE [None]
